FAERS Safety Report 21812900 (Version 1)
Quarter: 2023Q1

REPORT INFORMATION
  Report Type: Spontaneous
  Country: FR (occurrence: FR)
  Receive Date: 20230103
  Receipt Date: 20230103
  Transmission Date: 20230418
  Serious: Yes (Hospitalization)
  Sender: FDA-Public Use
  Company Number: None

PATIENT
  Age: 68 Year
  Sex: Male
  Weight: 92 kg

DRUGS (7)
  1. ACETAMINOPHEN [Suspect]
     Active Substance: ACETAMINOPHEN
     Indication: Arthralgia
     Dates: start: 20221205, end: 20221207
  2. LOVENOX [Suspect]
     Active Substance: ENOXAPARIN SODIUM
     Indication: Acute coronary syndrome
     Dosage: 10 000 UI ANTI-XA/1 ML, SOLUTION INJECTABLE (S.C.)  IN AMPOULE?18000 IU
     Route: 058
     Dates: start: 20221129, end: 20221204
  3. TIAPRIDE HYDROCHLORIDE [Suspect]
     Active Substance: TIAPRIDE HYDROCHLORIDE
     Indication: Agitation
     Dosage: 138 MG/ML, DRINKING SOLUTION
     Route: 048
     Dates: start: 20221203, end: 20221204
  4. GENTAMICIN SULFATE [Suspect]
     Active Substance: GENTAMICIN SULFATE
     Indication: Endocarditis
     Dosage: 160 MG, SOLUTION INJECTABLE/INJECTABLE SOLUTION?270 MG
     Route: 042
     Dates: start: 20221129, end: 20221207
  5. AMOXICILLIN SODIUM [Suspect]
     Active Substance: AMOXICILLIN SODIUM
     Indication: Endocarditis
     Dosage: POWDER FOR INJECTABLE SOLUTION (IV)
     Route: 042
     Dates: start: 20221129, end: 20221207
  6. ATORVASTATIN CALCIUM TRIHYDRATE [Suspect]
     Active Substance: ATORVASTATIN CALCIUM TRIHYDRATE
     Indication: Acute coronary syndrome
     Dosage: 80 MG FILM-COATED TABLET
     Route: 048
     Dates: start: 20221129, end: 20221204
  7. AMOXICILLIN\CLAVULANIC ACID [Suspect]
     Active Substance: AMOXICILLIN\CLAVULANIC ACID
     Indication: Endocarditis
     Route: 042
     Dates: start: 20221129, end: 20221207

REACTIONS (1)
  - Hepatitis acute [Recovering/Resolving]

NARRATIVE: CASE EVENT DATE: 20221206
